FAERS Safety Report 23369839 (Version 1)
Quarter: 2024Q1

REPORT INFORMATION
  Report Type: Spontaneous
  Country: CZ (occurrence: CZ)
  Receive Date: 20240105
  Receipt Date: 20240105
  Transmission Date: 20240410
  Serious: Yes (Other)
  Sender: FDA-Public Use
  Company Number: CZ-TEVA-VS-3138944

PATIENT
  Age: 26 Year

DRUGS (3)
  1. ETOPOSIDE [Suspect]
     Active Substance: ETOPOSIDE
     Indication: Testicular germ cell tumour
     Dosage: 4 COURSES OF BEP CHEMOTHERAPY
     Route: 065
  2. BLEOMYCIN [Suspect]
     Active Substance: BLEOMYCIN SULFATE
     Indication: Testicular germ cell tumour
     Dosage: 4 COURSES OF BEP CHEMOTHERAPY
     Route: 065
  3. CISPLATIN [Suspect]
     Active Substance: CISPLATIN
     Indication: Testicular germ cell tumour
     Dosage: 4 COURSES OF BEP CHEMOTHERAPY
     Route: 065

REACTIONS (2)
  - Aortic dissection [Unknown]
  - Drug ineffective [Unknown]
